FAERS Safety Report 22003305 (Version 1)
Quarter: 2023Q1

REPORT INFORMATION
  Report Type: Spontaneous
  Country: JP (occurrence: None)
  Receive Date: 20230217
  Receipt Date: 20230217
  Transmission Date: 20230418
  Serious: Yes (Other)
  Sender: FDA-Public Use
  Company Number: JP-Unichem Pharmaceuticals (USA) Inc-UCM202302-000141

PATIENT
  Age: 72 Year
  Sex: Female

DRUGS (11)
  1. TRAMADOL HCL [Suspect]
     Active Substance: TRAMADOL HYDROCHLORIDE
     Indication: Back pain
  2. TRAMADOL HCL [Suspect]
     Active Substance: TRAMADOL HYDROCHLORIDE
  3. TRAMADOL HCL [Suspect]
     Active Substance: TRAMADOL HYDROCHLORIDE
  4. TRAMADOL HCL [Suspect]
     Active Substance: TRAMADOL HYDROCHLORIDE
  5. TRAMADOL HCL [Suspect]
     Active Substance: TRAMADOL HYDROCHLORIDE
  6. TRAMADOL HCL [Suspect]
     Active Substance: TRAMADOL HYDROCHLORIDE
  7. TRAMADOL HCL [Suspect]
     Active Substance: TRAMADOL HYDROCHLORIDE
     Dosage: TAPERED IN 25 MG INCREMENTS AND DISCONTINUED AFTER 6 DAYS
  8. ARIPIPRAZOLE [Suspect]
     Active Substance: ARIPIPRAZOLE
     Indication: Hallucination, auditory
  9. RISPERIDONE [Suspect]
     Active Substance: RISPERIDONE
     Indication: Hallucination, auditory
  10. DICLOFENAC SODIUM [Concomitant]
     Active Substance: DICLOFENAC SODIUM
     Indication: Back pain
  11. PREGABALIN [Concomitant]
     Active Substance: PREGABALIN
     Indication: Back pain

REACTIONS (3)
  - Arrhythmia [Unknown]
  - Hallucination, auditory [Recovered/Resolved]
  - Rash [Unknown]
